FAERS Safety Report 25864556 (Version 1)
Quarter: 2025Q3

REPORT INFORMATION
  Report Type: Spontaneous
  Country: US (occurrence: US)
  Receive Date: 20250930
  Receipt Date: 20250930
  Transmission Date: 20251021
  Serious: Yes (Other)
  Sender: Jubilant Radiopharma
  Company Number: US-JUBILANT RADIOPHARMA-2025US000027

PATIENT

DRUGS (1)
  1. HICON [Suspect]
     Active Substance: SODIUM IODIDE I-131
     Indication: Thyroid cancer

REACTIONS (2)
  - Inflammatory myofibroblastic tumour [Unknown]
  - Hypothyroidism [Unknown]
